FAERS Safety Report 9593332 (Version 1)
Quarter: 2013Q4

REPORT INFORMATION
  Report Type: Spontaneous
  Country: US (occurrence: None)
  Receive Date: 20131002
  Receipt Date: 20131002
  Transmission Date: 20140711
  Serious: Yes (Hospitalization)
  Sender: FDA-Public Use
  Company Number: METO20130056

PATIENT
  Age: 47 Year
  Sex: Female

DRUGS (5)
  1. METOCLOPRAMIDE HYDROCHLORIDE [Suspect]
     Dosage: INTERMITTENT
  2. ONDANSETRON [Suspect]
  3. CITALOPRAM [Suspect]
  4. PROMETHAZINE HYDROCHLORIDE TABLETS (PROMETHAZINE HYDROCHLORIDE) (UNKNOWN) (PROMETHAZINE HYDROCHLORIDE TABLETS) [Concomitant]
  5. CLOZAPINE (CLOZAPINE)(100 MILLIGRAM, UNKNOWN) (CLOZAPINE) [Concomitant]

REACTIONS (1)
  - Serotonin syndrome [None]
